FAERS Safety Report 8884054 (Version 2)
Quarter: 2013Q1

REPORT INFORMATION
  Report Type: Spontaneous
  Country: ES (occurrence: ES)
  Receive Date: 20121102
  Receipt Date: 20130306
  Transmission Date: 20140127
  Serious: Yes (Death, Hospitalization)
  Sender: FDA-Public Use
  Company Number: ES-ELI_LILLY_AND_COMPANY-ES201210007331

PATIENT
  Sex: Male

DRUGS (14)
  1. FORSTEO [Suspect]
     Indication: OSTEOPOROSIS
     Dosage: 20 UG, QD
     Route: 058
     Dates: start: 201207
  2. MINITRAN 10 [Concomitant]
     Indication: CARDIAC DISORDER
  3. LACEROL [Concomitant]
     Indication: CARDIAC DISORDER
  4. SYMBICORT FORTE [Concomitant]
     Indication: CHRONIC OBSTRUCTIVE PULMONARY DISEASE
  5. SPIRIVA [Concomitant]
     Indication: CHRONIC OBSTRUCTIVE PULMONARY DISEASE
  6. ADIRO [Concomitant]
     Indication: CEREBROVASCULAR ACCIDENT
  7. OMEPRAZOLE [Concomitant]
     Indication: GASTRITIS PROPHYLAXIS
  8. LIPLAT [Concomitant]
     Indication: HYPERLIPIDAEMIA
  9. PARAPRES [Concomitant]
     Indication: HYPERTENSION
  10. BESITRAN [Concomitant]
     Indication: DEPRESSION
  11. MYSOLINE [Concomitant]
     Indication: TREMOR
  12. LANTUS [Concomitant]
     Indication: DIABETES MELLITUS
  13. KEPPRA [Concomitant]
     Indication: EPILEPSY
  14. OMACOR [Concomitant]

REACTIONS (2)
  - Death [Fatal]
  - Chronic obstructive pulmonary disease [Recovered/Resolved]
